FAERS Safety Report 8258185-5 (Version None)
Quarter: 2012Q2

REPORT INFORMATION
  Report Type: 
  Country: None (occurrence: None)
  Receive Date: 20120403
  Receipt Date: 20120403
  Transmission Date: 20120825
  Serious: No
  Sender: FDA-Public Use
  Company Number: None

PATIENT
  Age: 73 Year
  Sex: Female
  Weight: 61.2356 kg

DRUGS (1)
  1. BONIVA [Suspect]
     Dosage: 1 PILL (168.75MG) EVERY 30 DAYS MOUTH
     Route: 048
     Dates: start: 20120315

REACTIONS (5)
  - HYPERHIDROSIS [None]
  - FEELING ABNORMAL [None]
  - DYSSTASIA [None]
  - MALAISE [None]
  - LOSS OF CONSCIOUSNESS [None]
